FAERS Safety Report 21987960 (Version 1)
Quarter: 2023Q1

REPORT INFORMATION
  Report Type: Report from Study
  Country: FR (occurrence: FR)
  Receive Date: 20230214
  Receipt Date: 20230214
  Transmission Date: 20230417
  Serious: No
  Sender: FDA-Public Use
  Company Number: FR-Global Blood Therapeutics Inc-FR-GBT-21-04668

PATIENT
  Age: 43 Year
  Sex: Male
  Weight: 77 kg

DRUGS (6)
  1. VOXELOTOR [Suspect]
     Active Substance: VOXELOTOR
     Indication: Haemolytic anaemia
     Dates: start: 20211202, end: 2022
  2. VOXELOTOR [Suspect]
     Active Substance: VOXELOTOR
     Indication: Haemolytic anaemia
     Dates: start: 2022
  3. OXBRYTA [Suspect]
     Active Substance: VOXELOTOR
     Indication: Haemolytic anaemia
     Dates: start: 20211202, end: 2022
  4. OXBRYTA [Suspect]
     Active Substance: VOXELOTOR
     Indication: Haemolytic anaemia
     Dates: start: 2022
  5. SIKLOS [Concomitant]
     Active Substance: HYDROXYUREA
     Indication: Thalassaemia beta
     Dosage: NOT PROVIDED
  6. TRANSFUSION [Concomitant]
     Dosage: NOT PROVIDED
     Dates: start: 2022

REACTIONS (1)
  - Fatigue [Recovering/Resolving]

NARRATIVE: CASE EVENT DATE: 20211203
